FAERS Safety Report 16850906 (Version 1)
Quarter: 2019Q3

REPORT INFORMATION
  Report Type: Spontaneous
  Country: US (occurrence: US)
  Receive Date: 20190925
  Receipt Date: 20190925
  Transmission Date: 20191005
  Serious: No
  Sender: FDA-Public Use
  Company Number: US-THERAPEUTICSMD-2019TMD01208

PATIENT
  Age: 55 Year
  Sex: Female
  Weight: 60.32 kg

DRUGS (2)
  1. IMVEXXY [Suspect]
     Active Substance: ESTRADIOL
     Indication: VULVOVAGINAL DRYNESS
     Dosage: 4 ?G, 1X/DAY IN THE MORNING
     Route: 067
     Dates: start: 20190522, end: 20190524
  2. IMVEXXY [Suspect]
     Active Substance: ESTRADIOL
     Indication: PH BODY FLUID ABNORMAL
     Dosage: 4 ?G, 1X/DAY IN THE EVENING
     Route: 067
     Dates: start: 20190602

REACTIONS (3)
  - Headache [Recovered/Resolved]
  - Off label use [Not Recovered/Not Resolved]
  - Intentional dose omission [Recovered/Resolved]

NARRATIVE: CASE EVENT DATE: 201905
